FAERS Safety Report 18901181 (Version 1)
Quarter: 2021Q1

REPORT INFORMATION
  Report Type: Spontaneous
  Country: CA (occurrence: CA)
  Receive Date: 20210217
  Receipt Date: 20210217
  Transmission Date: 20210420
  Serious: Yes (Hospitalization)
  Sender: FDA-Public Use
  Company Number: CA-JNJFOC-20210224539

PATIENT
  Age: 52 Year
  Sex: Female

DRUGS (2)
  1. STELARA [Suspect]
     Active Substance: USTEKINUMAB
     Indication: PRODUCT USED FOR UNKNOWN INDICATION
     Dosage: 11 YEARS
     Route: 058
  2. CYCLOSPORINE. [Suspect]
     Active Substance: CYCLOSPORINE
     Indication: PSORIASIS
     Route: 065

REACTIONS (8)
  - Dermatitis [Unknown]
  - Reproductive tract disorder [Unknown]
  - Pruritus [Unknown]
  - Contusion [Unknown]
  - Scar [Unknown]
  - Drug hypersensitivity [Unknown]
  - Psoriasis [Unknown]
  - Infection [Unknown]
